FAERS Safety Report 7067829-5 (Version None)
Quarter: 2010Q4

REPORT INFORMATION
  Report Type: 
  Country: None (occurrence: None)
  Receive Date: 20101028
  Receipt Date: 20101019
  Transmission Date: 20110411
  Serious: Yes (Hospitalization)
  Sender: FDA-Public Use
  Company Number: IT-JNJFOC-20101005363

PATIENT
  Age: 87 Year
  Sex: Female

DRUGS (5)
  1. TAVANIC [Suspect]
     Indication: PNEUMONIA
     Route: 042
     Dates: start: 20101012, end: 20101014
  2. KARVEZIDE [Concomitant]
     Route: 048
  3. ESOMEPRAZOLE [Concomitant]
     Route: 048
  4. EUTIROX [Concomitant]
     Route: 048
  5. AMARYL [Concomitant]
     Route: 048

REACTIONS (2)
  - HALLUCINATION, VISUAL [None]
  - PSYCHOMOTOR HYPERACTIVITY [None]
